FAERS Safety Report 8805001 (Version 2)
Quarter: 2012Q4

REPORT INFORMATION
  Report Type: Report from Study
  Country: FR (occurrence: FR)
  Receive Date: 20120924
  Receipt Date: 20121001
  Transmission Date: 20130627
  Serious: Yes (Death)
  Sender: FDA-Public Use
  Company Number: FR-ROCHE-1134974

PATIENT
  Age: 66 Year
  Sex: Male

DRUGS (1)
  1. AVASTIN [Suspect]
     Indication: COLORECTAL CANCER METASTATIC
     Route: 065
     Dates: start: 20111125, end: 20120321

REACTIONS (1)
  - Device related infection [Fatal]
